FAERS Safety Report 5060465-1 (Version None)
Quarter: 2006Q3

REPORT INFORMATION
  Report Type: 
  Country: None (occurrence: None)
  Receive Date: 20060721
  Receipt Date: 20060721
  Transmission Date: 20061208
  Serious: Yes (Other)
  Sender: FDA-Public Use
  Company Number: None

PATIENT
  Age: 61 Year
  Sex: Female
  Weight: 66.2252 kg

DRUGS (1)
  1. ESTRATEST [Suspect]
     Indication: HORMONE REPLACEMENT THERAPY
     Dosage: ONE DAILY

REACTIONS (2)
  - DRUG INEFFECTIVE [None]
  - PHARMACEUTICAL PRODUCT COUNTERFEIT [None]
